FAERS Safety Report 6193446-5 (Version None)
Quarter: 2009Q2

REPORT INFORMATION
  Report Type: 
  Country: None (occurrence: None)
  Receive Date: 20090518
  Receipt Date: 20090107
  Transmission Date: 20091009
  Serious: No
  Sender: FDA-Public Use
  Company Number: US-ABBOTT-09P-163-0496434-00

PATIENT
  Sex: Male

DRUGS (6)
  1. AZMACORT [Suspect]
     Indication: NASOPHARYNGITIS
     Dosage: UNKNOWN
     Route: 055
     Dates: start: 20090106, end: 20090106
  2. ZITHROMAX [Concomitant]
     Indication: NASOPHARYNGITIS
     Dates: start: 20090106
  3. NASACORT [Concomitant]
     Indication: NASOPHARYNGITIS
     Dates: start: 20090106
  4. ZYLET [Concomitant]
     Indication: NASOPHARYNGITIS
     Dates: start: 20090106
  5. AVAPRO [Concomitant]
     Indication: DRUG USE FOR UNKNOWN INDICATION
  6. LIPITOR [Concomitant]
     Indication: DRUG USE FOR UNKNOWN INDICATION

REACTIONS (1)
  - DRUG INEFFECTIVE [None]
